FAERS Safety Report 10732351 (Version 1)
Quarter: 2015Q1

REPORT INFORMATION
  Report Type: Spontaneous
  Country: BR (occurrence: BR)
  Receive Date: 20150123
  Receipt Date: 20150123
  Transmission Date: 20150721
  Serious: Yes (Other)
  Sender: FDA-Public Use
  Company Number: BR-ABBVIE-15P-020-1334674-00

PATIENT
  Sex: Female
  Weight: 53 kg

DRUGS (1)
  1. KALETRA [Suspect]
     Active Substance: LOPINAVIR\RITONAVIR
     Indication: HIV INFECTION
     Route: 048
     Dates: start: 1998

REACTIONS (8)
  - Depression [Unknown]
  - Pruritus [Unknown]
  - Eye pruritus [Unknown]
  - Diabetes mellitus [Unknown]
  - Retinal haemorrhage [Unknown]
  - Somnolence [Unknown]
  - Bipolar disorder [Unknown]
  - Hypersensitivity [Unknown]
